FAERS Safety Report 4449939-1 (Version None)
Quarter: 2004Q3

REPORT INFORMATION
  Report Type: 
  Country: None (occurrence: None)
  Receive Date: 20040915
  Receipt Date: 20040824
  Transmission Date: 20050211
  Serious: Yes (Other)
  Sender: FDA-Public Use
  Company Number: AU-GLAXOSMITHKLINE-B0344332A

PATIENT
  Age: 64 Year
  Sex: Female
  Weight: 60 kg

DRUGS (16)
  1. SERETIDE [Suspect]
     Indication: ASTHMA
     Dosage: 1PUFF TWICE PER DAY
     Route: 055
     Dates: start: 20040501
  2. PREDNISOLONE [Concomitant]
     Dates: start: 20040517
  3. TELFAST [Concomitant]
  4. VENTOLIN [Concomitant]
     Dosage: 1PUFF AS REQUIRED
  5. LIPITOR [Concomitant]
     Dosage: 10MG AT NIGHT
  6. ARISTOCORT [Concomitant]
  7. VENTOLIN [Concomitant]
     Route: 055
  8. ATROVENT [Concomitant]
  9. BETNOVATE [Concomitant]
  10. CAPADEX [Concomitant]
  11. DIAMICRON [Concomitant]
  12. KARVEZIDE [Concomitant]
  13. ACETAMINOPHEN W/ CODEINE [Concomitant]
  14. PANAMAX [Concomitant]
  15. VALIUM [Concomitant]
  16. INFLUENZA VACCINE (UNSPECIFIED) [Concomitant]
     Dates: start: 20040322

REACTIONS (17)
  - ANAPHYLACTIC REACTION [None]
  - ANOREXIA [None]
  - ASTHMA [None]
  - BRONCHOSPASM [None]
  - CHEST DISCOMFORT [None]
  - DIARRHOEA [None]
  - DRUG INEFFECTIVE [None]
  - DRY MOUTH [None]
  - DYSPNOEA [None]
  - FEELING ABNORMAL [None]
  - HYPERSENSITIVITY [None]
  - MUSCLE CRAMP [None]
  - NAUSEA [None]
  - NERVOUSNESS [None]
  - SWELLING FACE [None]
  - TENSION [None]
  - URTICARIA [None]
